FAERS Safety Report 8282725-3 (Version None)
Quarter: 2012Q2

REPORT INFORMATION
  Report Type: 
  Country: None (occurrence: None)
  Receive Date: 20120410
  Receipt Date: 20120330
  Transmission Date: 20120825
  Serious: Yes (Hospitalization, Other)
  Sender: FDA-Public Use
  Company Number: ADR-2012-00653

PATIENT
  Age: 16 Year
  Sex: Male

DRUGS (7)
  1. PERIACTIN [Concomitant]
  2. PHENOBARBITAL TAB [Concomitant]
  3. DIAZEPAM [Concomitant]
  4. SYMMETREL [Concomitant]
  5. BENZALINE [Concomitant]
  6. DANTRIUM [Concomitant]
  7. BACLOFEN [Suspect]
     Route: 037

REACTIONS (5)
  - INCREASED UPPER AIRWAY SECRETION [None]
  - RESPIRATORY DEPRESSION [None]
  - DRUG LEVEL INCREASED [None]
  - HYPOPNOEA [None]
  - GLOSSOPTOSIS [None]
